FAERS Safety Report 5032419-2 (Version None)
Quarter: 2006Q2

REPORT INFORMATION
  Report Type: 
  Country: None (occurrence: None)
  Receive Date: 20060622
  Receipt Date: 20060614
  Transmission Date: 20061013
  Serious: Yes (Hospitalization)
  Sender: FDA-Public Use
  Company Number: PHBS2006JP09097

PATIENT
  Sex: Female

DRUGS (2)
  1. LOXOPROFEN SODIUM [Suspect]
     Indication: WOUND COMPLICATION
     Route: 048
     Dates: start: 20050801
  2. VOLTAREN [Suspect]
     Indication: WOUND COMPLICATION
     Route: 048
     Dates: start: 20050801

REACTIONS (2)
  - LARGE INTESTINAL ULCER [None]
  - SHOCK HAEMORRHAGIC [None]
